FAERS Safety Report 23499182 (Version 1)
Quarter: 2024Q1

REPORT INFORMATION
  Report Type: Spontaneous
  Country: BR (occurrence: BR)
  Receive Date: 20240208
  Receipt Date: 20240208
  Transmission Date: 20240410
  Serious: Yes (Other)
  Sender: FDA-Public Use
  Company Number: BR-NOVOPROD-1169801

PATIENT
  Sex: Female

DRUGS (4)
  1. RYBELSUS [Suspect]
     Active Substance: SEMAGLUTIDE
     Dosage: UNK (AFTER TWO WEEKS TAKE ONE CAPSULE)
     Route: 048
  2. RYBELSUS [Suspect]
     Active Substance: SEMAGLUTIDE
     Indication: Product used for unknown indication
     Dosage: UNK (START WITH HALF A TABLET)
     Route: 048
     Dates: start: 20240108
  3. RYBELSUS [Suspect]
     Active Substance: SEMAGLUTIDE
     Dosage: UNK ( AFTER 1 MG)
     Route: 048
     Dates: end: 202401
  4. RYBELSUS [Suspect]
     Active Substance: SEMAGLUTIDE
     Dosage: UNK (AFTER 0.5 FOR 3 WEEKS )
     Route: 048

REACTIONS (5)
  - Blindness unilateral [Not Recovered/Not Resolved]
  - Palpitations [Recovered/Resolved]
  - Headache [Unknown]
  - Constipation [Unknown]
  - Inappropriate schedule of product administration [Recovered/Resolved]

NARRATIVE: CASE EVENT DATE: 20240101
